FAERS Safety Report 5401444-1 (Version None)
Quarter: 2007Q3

REPORT INFORMATION
  Report Type: 
  Country: None (occurrence: None)
  Receive Date: 20070731
  Receipt Date: 20070726
  Transmission Date: 20080115
  Serious: Yes (Other)
  Sender: FDA-Public Use
  Company Number: A0655193A

PATIENT
  Age: 31 Year
  Sex: Male
  Weight: 82.3 kg

DRUGS (3)
  1. NICORETTE (MINT) [Suspect]
     Indication: SMOKING CESSATION THERAPY
     Route: 002
     Dates: start: 20070611, end: 20070611
  2. NICODERM CQ [Suspect]
     Indication: SMOKING CESSATION THERAPY
  3. NICODERM CQ [Suspect]
     Indication: SMOKING CESSATION THERAPY

REACTIONS (7)
  - CEREBROVASCULAR ACCIDENT [None]
  - CIRCULATORY COLLAPSE [None]
  - DISTURBANCE IN ATTENTION [None]
  - DIZZINESS [None]
  - EUPHORIC MOOD [None]
  - FATIGUE [None]
  - SOMNOLENCE [None]
